FAERS Safety Report 4838568-3 (Version None)
Quarter: 2005Q4

REPORT INFORMATION
  Report Type: 
  Country: None (occurrence: None)
  Receive Date: 20051123
  Receipt Date: 20051115
  Transmission Date: 20060501
  Serious: Yes (Other)
  Sender: FDA-Public Use
  Company Number: FABR-11311

PATIENT
  Age: 46 Year
  Sex: Male
  Weight: 96 kg

DRUGS (6)
  1. FABRAZYME [Suspect]
     Indication: FABRY'S DISEASE
     Dosage: 70 MG IV
     Route: 042
     Dates: start: 20030806
  2. DILANTIN [Concomitant]
  3. TEGRETOL-XR [Concomitant]
  4. PENICILLIN V POTASSIUM [Concomitant]
  5. WARFARIN SODIUM [Concomitant]
  6. LISINOPRIL [Concomitant]

REACTIONS (3)
  - ANAEMIA [None]
  - CONDITION AGGRAVATED [None]
  - RECTAL HAEMORRHAGE [None]
